FAERS Safety Report 7968547-9 (Version None)
Quarter: 2011Q4

REPORT INFORMATION
  Report Type: 
  Country: None (occurrence: None)
  Receive Date: 20111207
  Receipt Date: 20111128
  Transmission Date: 20120403
  Serious: Yes (Hospitalization)
  Sender: FDA-Public Use
  Company Number: 2011MA016269

PATIENT
  Age: 66 Year
  Sex: Female

DRUGS (5)
  1. MEMANTINE HCL [Suspect]
     Indication: DEMENTIA
     Dosage: 10 MG;BID;PO
     Route: 048
     Dates: end: 20111025
  2. PRAVASTATIN [Suspect]
     Indication: BLOOD CHOLESTEROL
     Dosage: 40 MG;QD;PO
     Route: 048
     Dates: end: 20111025
  3. AMLODIPINE [Suspect]
     Indication: BLOOD PRESSURE
     Dosage: 5 MG;QD;PO
     Route: 048
     Dates: end: 20111025
  4. LANSOPRAZOLE [Concomitant]
  5. RAMIPRIL [Suspect]
     Indication: BLOOD PRESSURE
     Dosage: 10 MG;QD
     Dates: end: 20111026

REACTIONS (1)
  - PANCREATITIS ACUTE [None]
